FAERS Safety Report 11532611 (Version 2)
Quarter: 2015Q4

REPORT INFORMATION
  Report Type: Spontaneous
  Country: DE (occurrence: DE)
  Receive Date: 20150921
  Receipt Date: 20151127
  Transmission Date: 20160304
  Serious: Yes (Life-Threatening)
  Sender: FDA-Public Use
  Company Number: PHHY2015DE112945

PATIENT
  Age: 61 Year
  Sex: Female

DRUGS (1)
  1. LETROZOLE. [Suspect]
     Active Substance: LETROZOLE
     Indication: BREAST CANCER
     Dosage: 2.5 MG, AT MORNING, AFTER TRAFFIC ACCIDENT AT EVENING
     Route: 048
     Dates: start: 201502

REACTIONS (2)
  - Road traffic accident [Recovering/Resolving]
  - Sudden onset of sleep [Recovering/Resolving]

NARRATIVE: CASE EVENT DATE: 20150810
